FAERS Safety Report 5754145-4 (Version None)
Quarter: 2008Q2

REPORT INFORMATION
  Report Type: 
  Country: None (occurrence: None)
  Receive Date: 20080530
  Receipt Date: 20080519
  Transmission Date: 20081010
  Serious: Yes (Death)
  Sender: FDA-Public Use
  Company Number: ES-ROCHE-566527

PATIENT

DRUGS (2)
  1. TRETINOIN [Suspect]
     Route: 048
  2. IDARUBICIN HCL [Suspect]
     Dosage: GIVEN ON DAYS 2, 4, 6 AND 8 (AIDA REGIMEN).
     Route: 040

REACTIONS (1)
  - HAEMORRHAGE INTRACRANIAL [None]
